FAERS Safety Report 23438250 (Version 1)
Quarter: 2024Q1

REPORT INFORMATION
  Report Type: Spontaneous
  Country: US (occurrence: None)
  Receive Date: 20240123
  Receipt Date: 20240123
  Transmission Date: 20240410
  Serious: Yes (Other)
  Sender: FDA-Public Use
  Company Number: None

PATIENT
  Age: 70 Year
  Sex: Female
  Weight: 58.06 kg

DRUGS (3)
  1. PERFLUTREN [Suspect]
     Active Substance: PERFLUTREN
     Indication: Ultrasound scan
     Route: 042
     Dates: start: 20240108, end: 20240108
  2. CALCIUM [Concomitant]
     Active Substance: CALCIUM
  3. VITAMIN D [Concomitant]
     Active Substance: VITAMIN D NOS

REACTIONS (6)
  - Flank pain [None]
  - Dyspnoea [None]
  - Back pain [None]
  - Respiratory disorder [None]
  - Fatigue [None]
  - Immediate post-injection reaction [None]

NARRATIVE: CASE EVENT DATE: 20240108
